FAERS Safety Report 6293979-7 (Version None)
Quarter: 2009Q3

REPORT INFORMATION
  Report Type: 
  Country: None (occurrence: None)
  Receive Date: 20090803
  Receipt Date: 20080617
  Transmission Date: 20100115
  Serious: No
  Sender: FDA-Public Use
  Company Number: A0733582A

PATIENT
  Age: 74 Year
  Sex: Male

DRUGS (2)
  1. NICORETTE [Suspect]
  2. ZYRTEC [Concomitant]

REACTIONS (4)
  - AGEUSIA [None]
  - FEELING ABNORMAL [None]
  - INTENTIONAL DRUG MISUSE [None]
  - NICOTINE DEPENDENCE [None]
